FAERS Safety Report 24867510 (Version 1)
Quarter: 2025Q1

REPORT INFORMATION
  Report Type: Report from Study
  Country: ZA (occurrence: ZA)
  Receive Date: 20250121
  Receipt Date: 20250121
  Transmission Date: 20250409
  Serious: Yes (Hospitalization)
  Sender: ABBVIE
  Company Number: ZA-ABBVIE-6089630

PATIENT
  Sex: Female

DRUGS (2)
  1. OZURDEX [Suspect]
     Active Substance: DEXAMETHASONE
     Indication: Diabetic retinal oedema
     Route: 050
     Dates: start: 20240808
  2. OZURDEX [Suspect]
     Active Substance: DEXAMETHASONE
     Indication: Type 2 diabetes mellitus

REACTIONS (1)
  - Hip arthroplasty [Unknown]
